FAERS Safety Report 20413590 (Version 2)
Quarter: 2022Q1

REPORT INFORMATION
  Report Type: Spontaneous
  Country: DE (occurrence: DE)
  Receive Date: 20220201
  Receipt Date: 20220208
  Transmission Date: 20220424
  Serious: Yes (Death, Other)
  Sender: FDA-Public Use
  Company Number: DE-ALXN-A202201132

PATIENT
  Age: 86 Year
  Sex: Male

DRUGS (1)
  1. ONDEXXYA [Suspect]
     Active Substance: ANDEXANET ALFA
     Indication: Procoagulant therapy
     Dosage: UNK
     Route: 065

REACTIONS (3)
  - Hemiparesis [Fatal]
  - Dysarthria [Unknown]
  - Dysphagia [Unknown]
